FAERS Safety Report 24313089 (Version 3)
Quarter: 2024Q3

REPORT INFORMATION
  Report Type: Spontaneous
  Country: DE (occurrence: DE)
  Receive Date: 20240912
  Receipt Date: 20240927
  Transmission Date: 20241017
  Serious: Yes (Life-Threatening, Hospitalization, Other)
  Sender: DR REDDYS
  Company Number: None

PATIENT
  Age: 72 Year
  Sex: Female

DRUGS (5)
  1. LACOSAMIDE [Suspect]
     Active Substance: LACOSAMIDE
     Indication: Epilepsy
     Dosage: 50 MG P.O. 1-0-1
     Route: 048
     Dates: start: 20230713, end: 20230731
  2. LACOSAMIDE [Suspect]
     Active Substance: LACOSAMIDE
     Indication: Partial seizures
  3. FLECAINIDE [Suspect]
     Active Substance: FLECAINIDE
     Indication: Atrial flutter
     Dosage: 100MG 1-0-0 P.O. FROM BEFORE ADMISSION
     Route: 048
  4. FLECAINIDE [Suspect]
     Active Substance: FLECAINIDE
     Indication: Atrial fibrillation
  5. TOLVAPTAN [Concomitant]
     Active Substance: TOLVAPTAN
     Indication: Inappropriate antidiuretic hormone secretion
     Dosage: UNK
     Route: 065
     Dates: start: 2020

REACTIONS (11)
  - Electrocardiogram QRS complex prolonged [Recovered/Resolved]
  - Syncope [Recovered/Resolved]
  - Drug interaction [Recovered/Resolved]
  - Defect conduction intraventricular [Recovered/Resolved]
  - Renal impairment [Unknown]
  - Pulseless electrical activity [Unknown]
  - Hyponatraemia [Recovering/Resolving]
  - Rhythm idioventricular [Recovering/Resolving]
  - Acute kidney injury [Recovering/Resolving]
  - Bundle branch block right [Recovering/Resolving]
  - Ventricular extrasystoles [Unknown]

NARRATIVE: CASE EVENT DATE: 20230731
